FAERS Safety Report 25532773 (Version 1)
Quarter: 2025Q3

REPORT INFORMATION
  Report Type: Spontaneous
  Country: US (occurrence: US)
  Receive Date: 20250709
  Receipt Date: 20250709
  Transmission Date: 20251020
  Serious: Yes (Hospitalization, Other)
  Sender: DR REDDYS
  Company Number: US-DRL-USA-USA/2025/07/009685

PATIENT
  Sex: Female

DRUGS (4)
  1. BIVALIRUDIN [Suspect]
     Active Substance: BIVALIRUDIN
     Indication: Anticoagulant therapy
     Dosage: 0.15 MG/KG/HOUR, REACHING AVERAGE DOSE OF 0.40 MG/KG/HOUR UNTIL ECMO DAY 10
  2. BIVALIRUDIN [Suspect]
     Active Substance: BIVALIRUDIN
  3. BIVALIRUDIN [Suspect]
     Active Substance: BIVALIRUDIN
  4. HEPARIN [Concomitant]
     Active Substance: HEPARIN SODIUM
     Indication: Anticoagulant therapy

REACTIONS (1)
  - Drug resistance [Unknown]
